FAERS Safety Report 17911644 (Version 5)
Quarter: 2020Q4

REPORT INFORMATION
  Report Type: Spontaneous
  Country: US (occurrence: US)
  Receive Date: 20200618
  Receipt Date: 20201215
  Transmission Date: 20210113
  Serious: No
  Sender: FDA-Public Use
  Company Number: US-PFIZER INC-2020235490

PATIENT
  Age: 60 Year
  Sex: Female
  Weight: 70 kg

DRUGS (2)
  1. IBRANCE [Suspect]
     Active Substance: PALBOCICLIB
     Indication: BREAST CANCER METASTATIC
     Dosage: 125 MG, CYCLIC (125MG 1 TABLET BY MOUTH FOR 21 DAYS THEN OFF FOR 7)
     Route: 048
     Dates: start: 2017, end: 2017
  2. IBRANCE [Suspect]
     Active Substance: PALBOCICLIB
     Dosage: 125 MG, CYCLIC (1 TABLET BY MOUTH ONCE DAILY FOR 3 WEEKS, THEN OFF FOR 7 DAYS)
     Route: 048
     Dates: start: 2017

REACTIONS (8)
  - Inappropriate schedule of product administration [Unknown]
  - Oesophageal disorder [Not Recovered/Not Resolved]
  - Oesophageal spasm [Unknown]
  - Neutrophil count decreased [Unknown]
  - Pain [Unknown]
  - Dysphagia [Not Recovered/Not Resolved]
  - Condition aggravated [Not Recovered/Not Resolved]
  - Mastication disorder [Unknown]

NARRATIVE: CASE EVENT DATE: 2020
